FAERS Safety Report 8560381-4 (Version None)
Quarter: 2012Q3

REPORT INFORMATION
  Report Type: 
  Country: None (occurrence: None)
  Receive Date: 20120802
  Receipt Date: 20120112
  Transmission Date: 20120928
  Serious: Yes (Other)
  Sender: FDA-Public Use
  Company Number: US-ROCHE-1094813

PATIENT
  Sex: Male

DRUGS (1)
  1. PEGASYS [Suspect]
     Indication: HEPATITIS C
     Route: 065
     Dates: start: 20100618, end: 20100822

REACTIONS (9)
  - INFLUENZA LIKE ILLNESS [None]
  - NAUSEA [None]
  - NO THERAPEUTIC RESPONSE [None]
  - HEADACHE [None]
  - WEIGHT INCREASED [None]
  - VIRAL LOAD INCREASED [None]
  - ARTHRALGIA [None]
  - FATIGUE [None]
  - INSOMNIA [None]
